FAERS Safety Report 22933084 (Version 2)
Quarter: 2024Q1

REPORT INFORMATION
  Report Type: Spontaneous
  Country: FR (occurrence: US)
  Receive Date: 20230912
  Receipt Date: 20240331
  Transmission Date: 20240410
  Serious: Yes (Hospitalization, Other)
  Sender: FDA-Public Use
  Company Number: FR-002147023-NVSC2023FR133092

PATIENT
  Sex: Female
  Weight: 65.6 kg

DRUGS (7)
  1. TYSABRI [Suspect]
     Active Substance: NATALIZUMAB
     Indication: Relapsing-remitting multiple sclerosis
     Route: 050
     Dates: start: 201808
  2. TYSABRI [Suspect]
     Active Substance: NATALIZUMAB
     Route: 050
  3. TYSABRI [Suspect]
     Active Substance: NATALIZUMAB
     Route: 050
     Dates: start: 20180820
  4. LIORESAL [Suspect]
     Active Substance: BACLOFEN
     Indication: Product used for unknown indication
     Dosage: UNK (GRADUALLY INCREASED TO 90 MG PER DAY IN 3 DOSES)
     Route: 050
  5. BOTULINUM TOXIN NOS [Suspect]
     Active Substance: BOTULINUM TOXIN NOS
     Indication: Muscle spasticity
     Dosage: UNK
     Route: 050
     Dates: start: 20181016
  6. GILENYA [Suspect]
     Active Substance: FINGOLIMOD HYDROCHLORIDE
     Indication: Relapsing multiple sclerosis
     Dosage: UNK
     Route: 050
     Dates: start: 201804, end: 201807
  7. ABILIFY [Concomitant]
     Active Substance: ARIPIPRAZOLE
     Indication: Psychotic disorder
     Route: 050

REACTIONS (23)
  - Coma [Unknown]
  - Quadriplegia [Unknown]
  - Multiple sclerosis relapse [Unknown]
  - IIIrd nerve paralysis [Unknown]
  - Nephritis bacterial [Unknown]
  - Escherichia test positive [Unknown]
  - Renal infarct [Unknown]
  - Dysphagia [Unknown]
  - Muscle spasticity [Unknown]
  - Hemiparesis [Unknown]
  - Haemorrhage [Unknown]
  - Neurological decompensation [Unknown]
  - Cognitive disorder [Not Recovered/Not Resolved]
  - Pyrexia [Unknown]
  - Pelvic fluid collection [Unknown]
  - Malnutrition [Unknown]
  - Pleural effusion [Unknown]
  - Haematoma muscle [Unknown]
  - Liver disorder [Unknown]
  - Catheter site haemorrhage [Unknown]
  - Body temperature abnormal [Unknown]
  - Dysarthria [Unknown]
  - Motor dysfunction [Unknown]

NARRATIVE: CASE EVENT DATE: 20180701
